FAERS Safety Report 4717631-1 (Version None)
Quarter: 2005Q3

REPORT INFORMATION
  Report Type: 
  Country: None (occurrence: None)
  Receive Date: 20050713
  Receipt Date: 20050414
  Transmission Date: 20060218
  Serious: Yes (Other)
  Sender: FDA-Public Use
  Company Number: 402181

PATIENT
  Age: 40 Year
  Sex: Male

DRUGS (1)
  1. FUZEON [Suspect]
     Indication: DRUG USE FOR UNKNOWN INDICATION

REACTIONS (5)
  - ADVERSE EVENT [None]
  - INJECTION SITE PAIN [None]
  - INJECTION SITE REACTION [None]
  - MASS [None]
  - PAIN [None]
